FAERS Safety Report 4363297-2 (Version None)
Quarter: 2004Q2

REPORT INFORMATION
  Report Type: 
  Country: None (occurrence: None)
  Receive Date: 20040519
  Receipt Date: 20040505
  Transmission Date: 20050107
  Serious: Yes (Hospitalization, Other)
  Sender: FDA-Public Use
  Company Number: 236798

PATIENT
  Sex: Male
  Weight: 4.3 kg

DRUGS (12)
  1. NOVORAPID PENFIL 3 ML (NOVORAPID PENFIL 3 ML) (INSULIN ASPART) SOLUTIO [Suspect]
     Indication: DIABETES MELLITUS INSULIN-DEPENDENT
     Dosage: 60 IU, QD, INTRAUTERINE
     Route: 015
     Dates: start: 20031008
  2. INSULATARD HM PENFIL (INSULIN HUMAN) SUSPENSION FOR INJECTION, 100 IU/ [Concomitant]
  3. MATERNA 1.60 (DOCUSATE SODIUM, MINERALS NOS, VITAMINS NOS) [Concomitant]
  4. LIDOCAINE [Concomitant]
  5. MARCAINE [Concomitant]
  6. DIAZEPAM [Concomitant]
  7. FENTANYL [Concomitant]
  8. CALCIUM GLUCONATE [Concomitant]
  9. AUGMENTIN /UNK/(AMOXICILLIN TRIHYDRATE, CALVULANATE POTASSIUM) [Concomitant]
  10. KONAKION [Concomitant]
  11. PLASMA [Concomitant]
  12. FURANTHRIL ^PHARMACHIUM^ (FUROSEMIDE) [Concomitant]

REACTIONS (8)
  - APGAR SCORE LOW [None]
  - BLOOD CALCIUM DECREASED [None]
  - BLOOD PH DECREASED [None]
  - CAESAREAN SECTION [None]
  - DRUG EXPOSURE DURING PREGNANCY [None]
  - HYPOGLYCAEMIA NEONATAL [None]
  - NEONATAL DISORDER [None]
  - TREMOR NEONATAL [None]
